FAERS Safety Report 4462329-0 (Version None)
Quarter: 2004Q3

REPORT INFORMATION
  Report Type: 
  Country: None (occurrence: None)
  Receive Date: 20040924
  Receipt Date: 20040909
  Transmission Date: 20050211
  Serious: Yes (Hospitalization)
  Sender: FDA-Public Use
  Company Number: 234728K04USA

PATIENT
  Age: 28 Year
  Sex: Female

DRUGS (1)
  1. REBIF [Suspect]
     Indication: MULTIPLE SCLEROSIS
     Dosage: 44 MCG, 3 IN 1 WEEKS
     Dates: start: 20040114

REACTIONS (7)
  - BRONCHITIS [None]
  - EAR INFECTION [None]
  - HYPOAESTHESIA [None]
  - JOINT SWELLING [None]
  - PHARYNGITIS STREPTOCOCCAL [None]
  - POST PROCEDURAL PAIN [None]
  - SINUSITIS [None]
